FAERS Safety Report 9671270 (Version 1)
Quarter: 2013Q4

REPORT INFORMATION
  Report Type: Spontaneous
  Country: GB (occurrence: GB)
  Receive Date: 20131106
  Receipt Date: 20131106
  Transmission Date: 20140711
  Serious: Yes (Other)
  Sender: FDA-Public Use
  Company Number: GB-TEVA-440856ISR

PATIENT
  Age: 39 Year
  Sex: Female
  Weight: 83.46 kg

DRUGS (4)
  1. TRIMETHOPRIM [Suspect]
     Indication: CYSTITIS
     Dosage: 2 DOSAGE FORMS DAILY;
     Route: 048
     Dates: start: 20131008, end: 20131010
  2. DESOGESTREL [Concomitant]
  3. PARACETAMOL [Concomitant]
  4. IBUPROFEN [Concomitant]

REACTIONS (3)
  - Migraine [Not Recovered/Not Resolved]
  - Musculoskeletal stiffness [Not Recovered/Not Resolved]
  - Insomnia [Unknown]
